FAERS Safety Report 9608451 (Version 1)
Quarter: 2013Q4

REPORT INFORMATION
  Report Type: Spontaneous
  Country: US (occurrence: None)
  Receive Date: 20131007
  Receipt Date: 20131007
  Transmission Date: 20140711
  Serious: No
  Sender: FDA-Public Use
  Company Number: None

PATIENT
  Age: 64 Year
  Sex: Male
  Weight: 59 kg

DRUGS (3)
  1. CALCIUM CARBONATE [Suspect]
     Dates: start: 20120120
  2. VITAMIN D2 [Suspect]
  3. ZOLEDRONIC ACID (ZOLENDRONATE, ZOMETA) [Suspect]

REACTIONS (1)
  - Disease progression [None]
